FAERS Safety Report 6713542-0 (Version None)
Quarter: 2010Q2

REPORT INFORMATION
  Report Type: 
  Country: None (occurrence: None)
  Receive Date: 20100506
  Receipt Date: 20100427
  Transmission Date: 20101027
  Serious: Yes (Hospitalization, Other)
  Sender: FDA-Public Use
  Company Number: US-MPIJNJ-2010-02334

PATIENT
  Age: 61 Year
  Sex: Female
  Weight: 65.8 kg

DRUGS (2)
  1. VELCADE [Suspect]
     Indication: SOFT TISSUE NEOPLASM
     Dosage: 1.3 MG/M2, CYCLIC
     Route: 042
     Dates: start: 20100301, end: 20100422
  2. VORINOSTAT [Suspect]
     Indication: SOFT TISSUE NEOPLASM
     Dosage: 400 MG, CYCLIC
     Route: 048
     Dates: start: 20100301, end: 20100422

REACTIONS (5)
  - DIARRHOEA [None]
  - HYPOPHOSPHATAEMIA [None]
  - NAUSEA [None]
  - PLATELET COUNT DECREASED [None]
  - VOMITING [None]
